FAERS Safety Report 4505063-0 (Version None)
Quarter: 2004Q4

REPORT INFORMATION
  Report Type: 
  Country: None (occurrence: None)
  Receive Date: 20041117
  Receipt Date: 20041117
  Transmission Date: 20050328
  Serious: Yes (Hospitalization)
  Sender: FDA-Public Use
  Company Number: None

PATIENT
  Age: 69 Year
  Sex: Male

DRUGS (9)
  1. NPH INSULIN [Suspect]
     Indication: DIABETES MELLITUS INSULIN-DEPENDENT
     Dosage: 45 UNITS QAM  / 58 QPM
     Dates: start: 19960901
  2. FELODIPINE [Concomitant]
  3. KCL TAB [Concomitant]
  4. THEOPHYLLINE [Concomitant]
  5. FOSINOPRIL SODIUM [Concomitant]
  6. VIAGRA [Concomitant]
  7. IBUPROFEN [Concomitant]
  8. ZOCOR [Concomitant]
  9. TERAZOSIN HCL [Concomitant]

REACTIONS (3)
  - ASTHENIA [None]
  - DIZZINESS [None]
  - HYPOGLYCAEMIA [None]
